FAERS Safety Report 14084598 (Version 1)
Quarter: 2017Q4

REPORT INFORMATION
  Report Type: Report from Study
  Country: US (occurrence: US)
  Receive Date: 20171013
  Receipt Date: 20171013
  Transmission Date: 20180321
  Serious: Yes (Other)
  Sender: FDA-Public Use
  Company Number: US-GILEAD-2017-0298551

PATIENT
  Age: 46 Year
  Sex: Female

DRUGS (32)
  1. IMITREX [Concomitant]
     Active Substance: SUMATRIPTAN SUCCINATE
  2. PROTONIX                           /00661201/ [Concomitant]
     Active Substance: OMEPRAZOLE
  3. VITAMIN E                          /00110501/ [Concomitant]
     Active Substance: TOCOPHEROL
  4. AMBRISENTAN [Suspect]
     Active Substance: AMBRISENTAN
     Indication: PULMONARY HYPERTENSION
     Dosage: 5 MG, QD
     Route: 065
     Dates: start: 20170508
  5. CALCIUM [Concomitant]
     Active Substance: CALCIUM
  6. GABAPENTIN. [Concomitant]
     Active Substance: GABAPENTIN
  7. MORPHINE SULFATE. [Concomitant]
     Active Substance: MORPHINE SULFATE
  8. MULTI VITAMIN                      /08408501/ [Concomitant]
  9. RIBOFLAVIN [Concomitant]
     Active Substance: RIBOFLAVIN
  10. SPIRONOLACTON [Concomitant]
     Active Substance: SPIRONOLACTONE
  11. TRAZODONE [Concomitant]
     Active Substance: TRAZODONE HYDROCHLORIDE
  12. VISTARIL                           /00058402/ [Concomitant]
     Active Substance: HYDROXYZINE HYDROCHLORIDE
  13. FOLIC ACID. [Concomitant]
     Active Substance: FOLIC ACID
  14. PERIDEX                            /00016001/ [Concomitant]
     Active Substance: DEXAMETHASONE
  15. PROPRANOLOL [Concomitant]
     Active Substance: PROPRANOLOL HYDROCHLORIDE
  16. FLONASE                            /00908302/ [Concomitant]
     Active Substance: MOMETASONE FUROATE
  17. RECLAST [Concomitant]
     Active Substance: ZOLEDRONIC ACID
  18. REGLAN [Concomitant]
     Active Substance: METOCLOPRAMIDE HYDROCHLORIDE
  19. ALBUTEROL                          /00139501/ [Concomitant]
     Active Substance: ALBUTEROL
  20. DOCUSATE SOD [Concomitant]
  21. MECLIZINE [Concomitant]
     Active Substance: MECLIZINE HYDROCHLORIDE
  22. VENTOLIN [Concomitant]
     Active Substance: ALBUTEROL SULFATE
  23. ADCIRCA [Suspect]
     Active Substance: TADALAFIL
     Indication: PULMONARY HYPERTENSION
     Dosage: 20 MG, UNK
     Route: 065
  24. BIOTIN [Concomitant]
     Active Substance: BIOTIN
  25. BUPROPION. [Concomitant]
     Active Substance: BUPROPION
  26. MAGNESIUM [Concomitant]
     Active Substance: MAGNESIUM
  27. PROCHLORPERAZ [Concomitant]
     Active Substance: PROCHLORPERAZINE MALEATE
  28. PROMETHAZINE [Concomitant]
     Active Substance: PROMETHAZINE\PROMETHAZINE HYDROCHLORIDE
  29. LEVOTHYROXIN [Concomitant]
     Active Substance: LEVOTHYROXINE
  30. PENTOXIFYLLIN [Concomitant]
     Active Substance: PENTOXIFYLLINE
  31. VITAMIN B-6 [Concomitant]
     Active Substance: PYRIDOXINE
  32. VITAMIN D3 [Concomitant]
     Active Substance: CHOLECALCIFEROL

REACTIONS (2)
  - Varicose vein ruptured [Not Recovered/Not Resolved]
  - Clostridium difficile infection [Unknown]

NARRATIVE: CASE EVENT DATE: 201710
